FAERS Safety Report 4948365-6 (Version None)
Quarter: 2006Q1

REPORT INFORMATION
  Report Type: 
  Country: None (occurrence: None)
  Receive Date: 20060320
  Receipt Date: 20060307
  Transmission Date: 20060701
  Serious: Yes (Hospitalization)
  Sender: FDA-Public Use
  Company Number: 2006UW03815

PATIENT
  Age: 68 Year
  Sex: Male

DRUGS (7)
  1. CRESTOR [Suspect]
     Route: 048
     Dates: end: 20051201
  2. ALTACE [Concomitant]
  3. ATENOLOL [Concomitant]
  4. ASPIRIN [Concomitant]
  5. VITAMIN B6 [Concomitant]
  6. VITAMIN B-12 [Concomitant]
  7. FOLIC ACID [Concomitant]

REACTIONS (4)
  - CEREBRAL INFARCTION [None]
  - FEELING ABNORMAL [None]
  - THROMBOCYTOPENIC PURPURA [None]
  - THROMBOTIC THROMBOCYTOPENIC PURPURA [None]
